FAERS Safety Report 21392108 (Version 1)
Quarter: 2022Q3

REPORT INFORMATION
  Report Type: Spontaneous
  Country: US (occurrence: None)
  Receive Date: 20220928
  Receipt Date: 20220928
  Transmission Date: 20221026
  Serious: Yes (Other)
  Sender: FDA-Public Use
  Company Number: None

PATIENT
  Age: 30 Year
  Sex: Female
  Weight: 55.35 kg

DRUGS (3)
  1. ELURYNG [Suspect]
     Active Substance: ETHINYL ESTRADIOL\ETONOGESTREL
     Indication: Contraception
  2. biotin (hair, nail, skin) supplements [Concomitant]
  3. cholesterol support pills [Concomitant]

REACTIONS (3)
  - Neck pain [None]
  - Complication associated with device [None]
  - Dyspareunia [None]

NARRATIVE: CASE EVENT DATE: 20220910
